FAERS Safety Report 21254894 (Version 1)
Quarter: 2022Q3

REPORT INFORMATION
  Report Type: Spontaneous
  Country: NL (occurrence: NL)
  Receive Date: 20220825
  Receipt Date: 20220825
  Transmission Date: 20221026
  Serious: Yes (Other)
  Sender: FDA-Public Use
  Company Number: NL-TEVA-2022-NL-2067050

PATIENT
  Age: 2 Year
  Sex: Male

DRUGS (2)
  1. ATENOLOL [Suspect]
     Active Substance: ATENOLOL
     Indication: Angiosarcoma
     Route: 065
  2. PREDNISOLONE [Suspect]
     Active Substance: PREDNISOLONE
     Indication: Angiosarcoma
     Route: 065

REACTIONS (4)
  - Drug ineffective [Unknown]
  - Cushing^s syndrome [Unknown]
  - Growth retardation [Unknown]
  - Rebound effect [Unknown]
